FAERS Safety Report 11220434 (Version 1)
Quarter: 2015Q2

REPORT INFORMATION
  Report Type: Spontaneous
  Country: US (occurrence: None)
  Receive Date: 20150625
  Receipt Date: 20150625
  Transmission Date: 20150821
  Serious: No
  Sender: FDA-Public Use
  Company Number: None

PATIENT
  Age: 63 Year
  Sex: Female

DRUGS (5)
  1. WELLBUTRIN [Concomitant]
     Active Substance: BUPROPION HYDROCHLORIDE
  2. HCTZ/TRIAMT [Concomitant]
  3. LISINOPRIL. [Concomitant]
     Active Substance: LISINOPRIL
  4. HARVONI [Suspect]
     Active Substance: LEDIPASVIR\SOFOSBUVIR
     Indication: HEPATITIS C
     Dosage: 90-400MG, QD, ORAL
     Route: 048
     Dates: start: 20150530
  5. OXCARBAZEPIN [Concomitant]
     Active Substance: OXCARBAZEPINE

REACTIONS (2)
  - Fatigue [None]
  - Insomnia [None]

NARRATIVE: CASE EVENT DATE: 20150530
